FAERS Safety Report 16780488 (Version 1)
Quarter: 2019Q3

REPORT INFORMATION
  Report Type: Report from Study
  Country: None (occurrence: IT)
  Receive Date: 20190906
  Receipt Date: 20190906
  Transmission Date: 20191005
  Serious: Yes (Hospitalization)
  Sender: FDA-Public Use
  Company Number: IT-TECHNOMED INC.-2074099

PATIENT
  Age: 28 Year
  Sex: Female

DRUGS (2)
  1. CATAPRESAN TTS [Suspect]
     Active Substance: CLONIDINE
     Indication: GESTATIONAL HYPERTENSION
     Dates: start: 20190704, end: 20190717
  2. ADALAT CRONO [Suspect]
     Active Substance: NIFEDIPINE
     Dates: start: 20190704

REACTIONS (1)
  - Gestational hypertension [Unknown]
